FAERS Safety Report 17631532 (Version 2)
Quarter: 2020Q2

REPORT INFORMATION
  Report Type: Spontaneous
  Country: US (occurrence: US)
  Receive Date: 20200406
  Receipt Date: 20200416
  Transmission Date: 20200713
  Serious: No
  Sender: FDA-Public Use
  Company Number: US-VERTEX PHARMACEUTICALS-2020-007190

PATIENT
  Age: 19 Year
  Sex: Male

DRUGS (1)
  1. TRIKAFTA [Suspect]
     Active Substance: ELEXACAFTOR\IVACAFTOR\TEZACAFTOR
     Indication: CYSTIC FIBROSIS
     Dosage: 2 TABLETS IN THE MORNING AND 1 TABLET IN THE EVENING, BID
     Route: 048
     Dates: start: 20200104

REACTIONS (2)
  - Insomnia [Recovering/Resolving]
  - Sputum increased [Recovered/Resolved]

NARRATIVE: CASE EVENT DATE: 2020
